FAERS Safety Report 7666131-8 (Version None)
Quarter: 2011Q3

REPORT INFORMATION
  Report Type: 
  Country: None (occurrence: None)
  Receive Date: 20110806
  Receipt Date: 20110509
  Transmission Date: 20111222
  Serious: No
  Sender: FDA-Public Use
  Company Number: US-ABBOTT-11P-163-0724275-00

PATIENT
  Age: 73 Year
  Sex: Male

DRUGS (2)
  1. NIASPAN [Suspect]
     Indication: PRODUCT USED FOR UNKNOWN INDICATION
     Dates: start: 20110401, end: 20110401
  2. NIASPAN [Suspect]
     Dates: start: 20110401

REACTIONS (2)
  - PRURITUS [None]
  - FLUSHING [None]
